FAERS Safety Report 14167270 (Version 1)
Quarter: 2017Q4

REPORT INFORMATION
  Report Type: Spontaneous
  Country: US (occurrence: US)
  Receive Date: 20171107
  Receipt Date: 20171107
  Transmission Date: 20180321
  Serious: No
  Sender: FDA-Public Use
  Company Number: US-BAUSCH-BL-2017-010367

PATIENT
  Sex: Female

DRUGS (2)
  1. UCERIS [Suspect]
     Active Substance: BUDESONIDE
     Indication: GASTROINTESTINAL INFLAMMATION
     Route: 065
  2. UCERIS [Suspect]
     Active Substance: BUDESONIDE
     Indication: COLITIS

REACTIONS (2)
  - Off label use [Unknown]
  - Therapeutic response unexpected [Unknown]
